FAERS Safety Report 25186464 (Version 1)
Quarter: 2025Q2

REPORT INFORMATION
  Report Type: Spontaneous
  Country: PT (occurrence: PT)
  Receive Date: 20250411
  Receipt Date: 20250411
  Transmission Date: 20250716
  Serious: Yes (Other)
  Sender: VIIV
  Company Number: PT-VIIV HEALTHCARE ULC-PT2025041347

PATIENT

DRUGS (2)
  1. VOCABRIA [Suspect]
     Active Substance: CABOTEGRAVIR SODIUM
     Indication: HIV infection
     Dosage: 600 MG, Q2M (600 MG EVERY 2 MONTHS)
     Route: 030
     Dates: start: 20250129, end: 20250228
  2. RILPIVIRINE [Suspect]
     Active Substance: RILPIVIRINE
     Indication: HIV infection
     Dosage: 900 MG, Q2M (900 MG EVERY 2 MONTHS)
     Route: 065
     Dates: start: 20250129, end: 20250228

REACTIONS (2)
  - Pain [Recovered/Resolved]
  - Administration site pain [Recovered/Resolved]

NARRATIVE: CASE EVENT DATE: 20250129
